FAERS Safety Report 10141749 (Version 3)
Quarter: 2014Q4

REPORT INFORMATION
  Report Type: Report from Study
  Country: US (occurrence: US)
  Receive Date: 20140429
  Receipt Date: 20141225
  Transmission Date: 20150528
  Serious: Yes (Hospitalization, Other)
  Sender: FDA-Public Use
  Company Number: US-BRISTOL-MYERS SQUIBB COMPANY-20659074

PATIENT
  Age: 63 Year
  Sex: Female
  Weight: 37.5 kg

DRUGS (11)
  1. CALCIUM [Concomitant]
     Active Substance: CALCIUM
     Dosage: 500 MG, UNK
     Dates: start: 20140210
  2. MULTI VITAMIN [Concomitant]
     Active Substance: VITAMINS
     Dosage: UNK
     Dates: start: 20140210
  3. VITAMIN B 6 [Concomitant]
     Dosage: 1 DF=1 CAPS
     Dates: start: 20140220
  4. STEROIDS [Concomitant]
     Active Substance: UNSPECIFIED INGREDIENT
  5. IPILIMUMAB [Suspect]
     Active Substance: IPILIMUMAB
     Indication: OVARIAN CANCER
     Dosage: 10 MG/KG, UNK
     Route: 042
     Dates: start: 20140220
  6. OSTEO BI-FLEX [Concomitant]
     Active Substance: CHONDROITIN SULFATE A\GLUCOSAMINE
     Dosage: 1DF=1 CABLET
     Dates: start: 20140210
  7. TURMERIC [Concomitant]
     Active Substance: TURMERIC
  8. VITAMIN D [Concomitant]
     Active Substance: CHOLECALCIFEROL
     Dosage: 1000 IU, UNK
     Dates: start: 20140210
  9. FISH OIL [Concomitant]
     Active Substance: FISH OIL
     Dosage: 4 G, UNK
     Dates: start: 20140210
  10. GINKGO BILOBA [Concomitant]
     Active Substance: GINKGO
     Dosage: UNK
     Dates: start: 20140210
  11. PREDNISONE. [Concomitant]
     Active Substance: PREDNISONE
     Dosage: 1 MG/KG, UNK
     Dates: start: 20140407

REACTIONS (2)
  - Colitis [Unknown]
  - Small intestinal obstruction [Recovered/Resolved]

NARRATIVE: CASE EVENT DATE: 201404
